FAERS Safety Report 10548836 (Version 1)
Quarter: 2014Q4

REPORT INFORMATION
  Report Type: Spontaneous
  Country: GB (occurrence: GB)
  Receive Date: 20141028
  Receipt Date: 20141028
  Transmission Date: 20150529
  Serious: Yes (Hospitalization)
  Sender: FDA-Public Use
  Company Number: GB-WATSON-2014-22675

PATIENT
  Age: 75 Year

DRUGS (1)
  1. FUROSEMIDE (UNKNOWN) [Suspect]
     Active Substance: FUROSEMIDE
     Indication: PRODUCT USED FOR UNKNOWN INDICATION
     Dosage: 40MG OM
     Route: 065
     Dates: start: 20140909, end: 20141002

REACTIONS (1)
  - Hyponatraemia [Recovering/Resolving]
